FAERS Safety Report 14314800 (Version 5)
Quarter: 2019Q1

REPORT INFORMATION
  Report Type: Spontaneous
  Country: ES (occurrence: ES)
  Receive Date: 20171221
  Receipt Date: 20190129
  Transmission Date: 20190417
  Serious: Yes (Life-Threatening, Other)
  Sender: FDA-Public Use
  Company Number: ES-JNJFOC-20171220203

PATIENT
  Age: 42 Year
  Sex: Female

DRUGS (36)
  1. LEVETIRACETAM. [Suspect]
     Active Substance: LEVETIRACETAM
     Indication: GENERALISED TONIC-CLONIC SEIZURE
     Route: 065
  2. LEVETIRACETAM. [Suspect]
     Active Substance: LEVETIRACETAM
     Indication: PETIT MAL EPILEPSY
     Route: 065
  3. ZONISAMIDE. [Suspect]
     Active Substance: ZONISAMIDE
     Indication: GENERALISED TONIC-CLONIC SEIZURE
     Route: 065
  4. PROGESTERONE. [Suspect]
     Active Substance: PROGESTERONE
     Indication: GENERALISED TONIC-CLONIC SEIZURE
     Dosage: DURING THE SECOND HALF OF THE MENSTRUAL CYCLE FOR EVERY 8 HOURS
     Route: 065
  5. PROGESTERONE. [Suspect]
     Active Substance: PROGESTERONE
     Indication: EPILEPSY
     Dosage: DURING THE SECOND HALF OF THE MENSTRUAL CYCLE FOR EVERY 8 HOURS
     Route: 065
  6. VALPROIC ACID. [Concomitant]
     Active Substance: VALPROIC ACID
     Indication: GENERALISED TONIC-CLONIC SEIZURE
     Route: 065
  7. VALPROIC ACID. [Concomitant]
     Active Substance: VALPROIC ACID
     Indication: EPILEPSY
     Route: 065
  8. VALPROIC ACID. [Concomitant]
     Active Substance: VALPROIC ACID
     Indication: EPILEPSY
     Route: 065
  9. LAMOTRIGINE. [Suspect]
     Active Substance: LAMOTRIGINE
     Indication: EPILEPSY
     Route: 065
  10. VALPROIC ACID. [Concomitant]
     Active Substance: VALPROIC ACID
     Indication: PETIT MAL EPILEPSY
     Route: 065
  11. VALPROIC ACID. [Concomitant]
     Active Substance: VALPROIC ACID
     Indication: PETIT MAL EPILEPSY
     Route: 065
  12. CLOBAZAM. [Suspect]
     Active Substance: CLOBAZAM
     Indication: GENERALISED TONIC-CLONIC SEIZURE
     Route: 065
  13. LAMOTRIGINE. [Suspect]
     Active Substance: LAMOTRIGINE
     Indication: GENERALISED TONIC-CLONIC SEIZURE
     Route: 065
  14. ZONISAMIDE. [Suspect]
     Active Substance: ZONISAMIDE
     Indication: EPILEPSY
     Route: 065
  15. PROGESTERONE. [Suspect]
     Active Substance: PROGESTERONE
     Indication: PETIT MAL EPILEPSY
     Dosage: (100 MG/8 HOURS DURING THE SECOND HALF OF THE MENSTRUAL CYCLE)
     Route: 065
  16. ETHOSUXIMIDE. [Suspect]
     Active Substance: ETHOSUXIMIDE
     Indication: PETIT MAL EPILEPSY
     Route: 065
  17. ETHOSUXIMIDE. [Suspect]
     Active Substance: ETHOSUXIMIDE
     Indication: EPILEPSY
     Route: 065
  18. LAMOTRIGINE. [Suspect]
     Active Substance: LAMOTRIGINE
     Indication: GENERALISED TONIC-CLONIC SEIZURE
     Route: 065
  19. VALPROIC ACID. [Concomitant]
     Active Substance: VALPROIC ACID
     Indication: GENERALISED TONIC-CLONIC SEIZURE
     Route: 065
  20. TOPAMAX [Suspect]
     Active Substance: TOPIRAMATE
     Indication: EPILEPSY
     Route: 048
  21. LEVETIRACETAM. [Suspect]
     Active Substance: LEVETIRACETAM
     Indication: IDIOPATHIC GENERALISED EPILEPSY
     Route: 065
  22. PROGESTERONE. [Suspect]
     Active Substance: PROGESTERONE
     Indication: GENERALISED TONIC-CLONIC SEIZURE
     Dosage: (100 MG/8 HOURS DURING THE SECOND HALF OF THE MENSTRUAL CYCLE)
     Route: 065
  23. PROGESTERONE. [Suspect]
     Active Substance: PROGESTERONE
     Indication: EPILEPSY
     Dosage: (100 MG/8 HOURS DURING THE SECOND HALF OF THE MENSTRUAL CYCLE)
     Route: 065
  24. CLOBAZAM. [Suspect]
     Active Substance: CLOBAZAM
     Indication: PETIT MAL EPILEPSY
     Route: 065
  25. LAMOTRIGINE. [Suspect]
     Active Substance: LAMOTRIGINE
     Indication: PETIT MAL EPILEPSY
     Route: 065
  26. LAMOTRIGINE. [Suspect]
     Active Substance: LAMOTRIGINE
     Indication: PETIT MAL EPILEPSY
     Route: 065
  27. PROGESTERONE. [Suspect]
     Active Substance: PROGESTERONE
     Indication: PETIT MAL EPILEPSY
     Dosage: DURING THE SECOND HALF OF THE MENSTRUAL CYCLE FOR EVERY 8 HOURS
     Route: 065
  28. TOPAMAX [Suspect]
     Active Substance: TOPIRAMATE
     Indication: GENERALISED TONIC-CLONIC SEIZURE
     Route: 048
  29. LEVETIRACETAM. [Suspect]
     Active Substance: LEVETIRACETAM
     Indication: PETIT MAL EPILEPSY
     Route: 065
  30. LAMOTRIGINE. [Suspect]
     Active Substance: LAMOTRIGINE
     Indication: EPILEPSY
     Route: 065
  31. TOPAMAX [Suspect]
     Active Substance: TOPIRAMATE
     Indication: PETIT MAL EPILEPSY
     Route: 048
  32. LEVETIRACETAM. [Suspect]
     Active Substance: LEVETIRACETAM
     Indication: GENERALISED TONIC-CLONIC SEIZURE
     Route: 065
  33. LEVETIRACETAM. [Suspect]
     Active Substance: LEVETIRACETAM
     Indication: IDIOPATHIC GENERALISED EPILEPSY
     Route: 065
  34. ZONISAMIDE. [Suspect]
     Active Substance: ZONISAMIDE
     Indication: PETIT MAL EPILEPSY
     Route: 065
  35. ETHOSUXIMIDE. [Suspect]
     Active Substance: ETHOSUXIMIDE
     Indication: GENERALISED TONIC-CLONIC SEIZURE
     Route: 065
  36. CLOBAZAM. [Suspect]
     Active Substance: CLOBAZAM
     Indication: EPILEPSY
     Route: 065

REACTIONS (8)
  - Somnolence [Unknown]
  - Dizziness [Unknown]
  - Suicidal behaviour [Unknown]
  - Dyspepsia [Unknown]
  - Drug ineffective [Unknown]
  - Vomiting [Unknown]
  - Multiple-drug resistance [Unknown]
  - Depressed mood [Unknown]
